FAERS Safety Report 9193003 (Version 4)
Quarter: 2014Q1

REPORT INFORMATION
  Report Type: Report from Study
  Country: BR (occurrence: BR)
  Receive Date: 20130327
  Receipt Date: 20140130
  Transmission Date: 20141002
  Serious: Yes (Other)
  Sender: FDA-Public Use
  Company Number: PHHY2013BR029473

PATIENT
  Sex: Female
  Weight: 70 kg

DRUGS (6)
  1. DIOVAN [Suspect]
     Indication: HYPERTENSION
     Dosage: 3 DF (80MG), DAILY
     Route: 048
  2. DIOVAN [Suspect]
     Dosage: UNK UKN, UNK
  3. DIOVAN [Suspect]
     Dosage: UNK (80MG), UNK
     Route: 048
  4. DIOVAN [Suspect]
     Dosage: 4 DF (80MG), DAILY
     Route: 048
  5. ALDOMET [Concomitant]
     Indication: HYPERTENSION
     Dosage: 25 MG, UNK
     Route: 048
  6. CAPTOPRIL [Concomitant]
     Indication: HYPERTENSION
     Dosage: 25 MG, UNK
     Route: 048
     Dates: start: 20130322

REACTIONS (4)
  - Cerebrovascular accident [Recovered/Resolved]
  - Gait disturbance [Recovered/Resolved]
  - Hypertension [Recovered/Resolved]
  - Blood pressure fluctuation [Unknown]
